FAERS Safety Report 5073340-3 (Version None)
Quarter: 2006Q3

REPORT INFORMATION
  Report Type: 
  Country: None (occurrence: None)
  Receive Date: 20060717
  Receipt Date: 20060203
  Transmission Date: 20061208
  Serious: No
  Sender: FDA-Public Use
  Company Number: 2006000293

PATIENT
  Age: 74 Year
  Sex: Female

DRUGS (1)
  1. TARCEVA [Suspect]
     Indication: NON-SMALL CELL LUNG CANCER
     Dosage: 150 MG, (QD), ORAL
     Route: 048

REACTIONS (5)
  - DIARRHOEA [None]
  - DYSPHAGIA [None]
  - FATIGUE [None]
  - NAUSEA [None]
  - RASH [None]
